FAERS Safety Report 13510905 (Version 1)
Quarter: 2017Q2

REPORT INFORMATION
  Report Type: Spontaneous
  Country: US (occurrence: US)
  Receive Date: 20170503
  Receipt Date: 20170503
  Transmission Date: 20170830
  Serious: Yes (Disabling)
  Sender: FDA-Public Use
  Company Number: None

PATIENT
  Age: 51 Year
  Sex: Female
  Weight: 50.4 kg

DRUGS (17)
  1. SOURCE NATURALS CILANTRO METAL DETOX [Concomitant]
  2. TRAMMADOL [Concomitant]
  3. VITAMIN D [Concomitant]
     Active Substance: CHOLECALCIFEROL
  4. TURMERIC [Concomitant]
     Active Substance: HERBALS\TURMERIC
  5. OMNISCAN [Suspect]
     Active Substance: GADODIAMIDE
     Indication: PITUITARY TUMOUR BENIGN
     Dosage: INTRAVENOUS (NOT OTHERWISE SPECIFIED)
     Route: 042
     Dates: start: 20010910, end: 20161216
  6. ALPHA LIPOIC ACID [Concomitant]
     Active Substance: .ALPHA.-LIPOIC ACID
  7. EMU OIL [Concomitant]
     Active Substance: EMU OIL
  8. VITAMIN B12 [Concomitant]
     Active Substance: CYANOCOBALAMIN
  9. MULTIHANCE [Suspect]
     Active Substance: GADOBENATE DIMEGLUMINE
     Indication: PITUITARY TUMOUR BENIGN
     Dosage: INTRAVENOUS (NOT OTHERWISE SPECIFIED)
     Route: 042
     Dates: start: 20040901, end: 20161214
  10. HAPPY CAMPER (HERBS, MOSTLY PASSION FLOWER) [Concomitant]
  11. MULTIHANCE [Suspect]
     Active Substance: GADOBENATE DIMEGLUMINE
     Indication: BREAST CANCER
     Dosage: INTRAVENOUS (NOT OTHERWISE SPECIFIED)
     Route: 042
     Dates: start: 20040901, end: 20161214
  12. BONE UP (CALCIUM, MAGNESIUM, POTASSIUM, BORON, VIT D, ETC.) [Concomitant]
  13. GUARANA [Concomitant]
  14. JEUNESSE FINITI [Concomitant]
  15. ACETAMINPHEN [Concomitant]
  16. PROBIOTIC [Concomitant]
     Active Substance: PROBIOTICS NOS
  17. CALCIUM EDTA [Concomitant]

REACTIONS (7)
  - Pain [None]
  - Depression [None]
  - Skin lesion [None]
  - Arthralgia [None]
  - Skin hypertrophy [None]
  - Fatigue [None]
  - Loss of personal independence in daily activities [None]

NARRATIVE: CASE EVENT DATE: 20080901
